FAERS Safety Report 14599215 (Version 1)
Quarter: 2018Q1

REPORT INFORMATION
  Report Type: Spontaneous
  Country: US (occurrence: US)
  Receive Date: 20180302
  Receipt Date: 20180302
  Transmission Date: 20180509
  Serious: No
  Sender: FDA-Public Use
  Company Number: None

PATIENT
  Age: 48 Year
  Sex: Female
  Weight: 82.9 kg

DRUGS (2)
  1. RITUXIMAB. [Suspect]
     Active Substance: RITUXIMAB
     Indication: LYMPHOMA
     Dosage: 250 MG/M2/DAY DAY 1 IV
     Route: 042
     Dates: start: 20170530
  2. ZEVALIN (Y2B8) [Concomitant]
     Dosage: 0.3 MCI/KG DAY 8 IV
     Route: 042
     Dates: start: 20170606

REACTIONS (2)
  - Platelet count decreased [None]
  - Neutrophil count decreased [None]

NARRATIVE: CASE EVENT DATE: 20170711
